FAERS Safety Report 7773373-X (Version None)
Quarter: 2011Q3

REPORT INFORMATION
  Report Type: 
  Country: None (occurrence: None)
  Receive Date: 20110922
  Receipt Date: 20110913
  Transmission Date: 20111222
  Serious: Yes (Hospitalization, Other)
  Sender: FDA-Public Use
  Company Number: CH-ASTRAZENECA-2011SE55447

PATIENT
  Age: 76 Year
  Sex: Male

DRUGS (9)
  1. NEXIUM [Suspect]
     Route: 048
  2. MEFENAMIC ACID [Interacting]
     Route: 048
     Dates: end: 20100901
  3. ZOLOFT [Concomitant]
  4. CALCIMAGON D3 [Concomitant]
  5. TEMGESIC [Concomitant]
     Dosage: 0.1 MG IN RESERVE
  6. ACETAMINOPHEN [Concomitant]
  7. IMPORTAL [Concomitant]
  8. SINTROM [Interacting]
     Dosage: DOSAGE BETWEEN 1 AND 3 MG
     Route: 048
  9. LYRICA [Concomitant]

REACTIONS (3)
  - HAEMATOMA [None]
  - DRUG INTERACTION [None]
  - HAEMARTHROSIS [None]
